FAERS Safety Report 4398584-5 (Version None)
Quarter: 2004Q3

REPORT INFORMATION
  Report Type: 
  Country: None (occurrence: None)
  Receive Date: 20040712
  Receipt Date: 20040630
  Transmission Date: 20050211
  Serious: Yes (Hospitalization)
  Sender: FDA-Public Use
  Company Number: S04-FRA-02783-01

PATIENT
  Age: 79 Year
  Sex: Female

DRUGS (5)
  1. SEROPRAM (CITALOPRAM HYDROBROMIDE) [Suspect]
     Indication: DEPRESSION
     Dosage: 40 MG QD IV
     Route: 042
     Dates: start: 20040524, end: 20040530
  2. SEROPRAM (CITALOPRAM HYDROBROMIDE) [Suspect]
     Indication: DEPRESSION
     Dosage: 20 MG BID PO
     Route: 048
     Dates: start: 20040531, end: 20040531
  3. HALOPERIDOL [Concomitant]
  4. LORAZEPAM [Concomitant]
  5. OMEPRAZOLE [Concomitant]

REACTIONS (5)
  - DYSKINESIA [None]
  - MALAISE [None]
  - OVERDOSE [None]
  - PAIN [None]
  - TREMOR [None]
